FAERS Safety Report 4588576-5 (Version None)
Quarter: 2005Q1

REPORT INFORMATION
  Report Type: 
  Country: None (occurrence: None)
  Receive Date: 20050214
  Receipt Date: 20050214
  Transmission Date: 20050727
  Serious: Yes (Hospitalization)
  Sender: FDA-Public Use
  Company Number: None

PATIENT
  Age: 15 Year
  Sex: Male
  Weight: 42 kg

DRUGS (1)
  1. INFLIXIMAB [Suspect]
     Indication: HYPERSENSITIVITY
     Dosage: 500 MG OTO IV
     Route: 042
     Dates: start: 20041005, end: 20041005

REACTIONS (5)
  - DYSPNOEA [None]
  - HYPOTENSION [None]
  - INFUSION RELATED REACTION [None]
  - RASH [None]
  - SWELLING FACE [None]
